FAERS Safety Report 8803570 (Version 2)
Quarter: 2013Q3

REPORT INFORMATION
  Report Type: Report from Study
  Country: CA (occurrence: CA)
  Receive Date: 20120924
  Receipt Date: 20130927
  Transmission Date: 20140515
  Serious: Yes (Hospitalization, Other)
  Sender: FDA-Public Use
  Company Number: CA-UCBSA-066648

PATIENT
  Age: 50 Year
  Sex: Female

DRUGS (8)
  1. CIMZIA [Suspect]
     Indication: RHEUMATOID ARTHRITIS
     Route: 058
     Dates: start: 20110308, end: 20130521
  2. CIMZIA [Suspect]
     Indication: RHEUMATOID ARTHRITIS
     Route: 058
     Dates: start: 20110125, end: 20110222
  3. MTX [Concomitant]
     Indication: RHEUMATOID ARTHRITIS
     Dates: start: 200807
  4. FOLIC ACID [Concomitant]
     Indication: SUPPLEMENTATION THERAPY
     Dosage: 4/7 DAYS
     Route: 048
  5. SYNTHROID [Concomitant]
     Indication: HYPOTHYROIDISM
     Route: 048
  6. PROFERRIN [Concomitant]
     Indication: SUPPLEMENTATION THERAPY
     Route: 048
  7. B6 [Concomitant]
     Indication: SUPPLEMENTATION THERAPY
     Route: 048
  8. GLUCOSAMINE [Concomitant]
     Indication: RHEUMATOID ARTHRITIS
     Route: 048

REACTIONS (5)
  - Pancreatitis [Recovered/Resolved]
  - Diarrhoea [Recovered/Resolved]
  - Musculoskeletal pain [Unknown]
  - Insomnia [Unknown]
  - Joint swelling [Unknown]
